FAERS Safety Report 6894386-6 (Version None)
Quarter: 2010Q3

REPORT INFORMATION
  Report Type: 
  Country: None (occurrence: None)
  Receive Date: 20100727
  Receipt Date: 20100713
  Transmission Date: 20110219
  Serious: Yes (Congenital Anomaly)
  Sender: FDA-Public Use
  Company Number: GER/UKI/10/0014179

PATIENT
  Sex: Female

DRUGS (2)
  1. ONDANSETRON [Suspect]
     Indication: HYPEREMESIS GRAVIDARUM
     Dosage: TRANSPLACENTAL
     Route: 064
  2. CYCLIZINE (CYCLIZINE) [Suspect]
     Indication: HYPEREMESIS GRAVIDARUM
     Dosage: TRANSPLACENTAL
     Route: 064

REACTIONS (5)
  - ANAL ATRESIA [None]
  - ANAL FISTULA [None]
  - ANORECTAL DISORDER [None]
  - CARDIAC DISORDER [None]
  - MATERNAL DRUGS AFFECTING FOETUS [None]
